FAERS Safety Report 19798899 (Version 1)
Quarter: 2021Q3

REPORT INFORMATION
  Report Type: Spontaneous
  Country: JP (occurrence: JP)
  Receive Date: 20210907
  Receipt Date: 20210907
  Transmission Date: 20211014
  Serious: Yes (Hospitalization, Other)
  Sender: FDA-Public Use
  Company Number: JP-ROCHE-2906350

PATIENT
  Sex: Female

DRUGS (1)
  1. ACTEMRA [Suspect]
     Active Substance: TOCILIZUMAB
     Indication: RHEUMATOID ARTHRITIS
     Dosage: 162 MILLIGRAM, ONCE/2WEEKS
     Route: 058

REACTIONS (3)
  - Suspected COVID-19 [Recovered/Resolved]
  - Fall [Unknown]
  - Fracture [Unknown]

NARRATIVE: CASE EVENT DATE: 2021
